FAERS Safety Report 9715944 (Version 1)
Quarter: 2013Q4

REPORT INFORMATION
  Report Type: Spontaneous
  Country: US (occurrence: US)
  Receive Date: 20131127
  Receipt Date: 20131127
  Transmission Date: 20140711
  Serious: Yes (Other)
  Sender: FDA-Public Use
  Company Number: US-PERRIGO-13US011996

PATIENT
  Age: 57 Year
  Sex: Female

DRUGS (12)
  1. ACETAMINOPHEN 650MG ER 544 [Suspect]
     Indication: ABDOMINAL PAIN
     Dosage: UNK, UNK
     Route: 065
  2. TACROLIMUS [Concomitant]
     Indication: PRODUCT USED FOR UNKNOWN INDICATION
     Dosage: UNK, UNK
     Route: 065
  3. MYCOPHENOLATE [Concomitant]
     Indication: PRODUCT USED FOR UNKNOWN INDICATION
     Dosage: UNK, UNK
     Route: 065
  4. PREDNISOLONE [Concomitant]
     Indication: PRODUCT USED FOR UNKNOWN INDICATION
     Dosage: UNK, UNK
     Route: 065
  5. AMLODIPINE [Concomitant]
     Indication: PRODUCT USED FOR UNKNOWN INDICATION
     Dosage: UNK, UNK
     Route: 065
  6. SODIUM BICARBONATE [Concomitant]
     Indication: PRODUCT USED FOR UNKNOWN INDICATION
     Dosage: UNK, UNK
     Route: 065
  7. CALCITROL                          /00508501/ [Concomitant]
     Indication: PRODUCT USED FOR UNKNOWN INDICATION
     Dosage: UNK, UNK
     Route: 065
  8. CALTRATE                           /00944201/ [Concomitant]
     Indication: PRODUCT USED FOR UNKNOWN INDICATION
     Dosage: UNK, UNK
     Route: 065
  9. MULTIVITAMINS [Concomitant]
     Indication: PRODUCT USED FOR UNKNOWN INDICATION
     Dosage: UNK, UNK
     Route: 065
  10. ASPIRIN [Concomitant]
     Indication: ABDOMINAL PAIN
     Dosage: UNK, UNK
     Route: 065
  11. CODEINE [Concomitant]
     Indication: ABDOMINAL PAIN
     Dosage: UNK, UNK
     Route: 065
  12. PARACETAMOL [Concomitant]
     Indication: ABDOMINAL PAIN
     Dosage: UNK, UNK
     Route: 065

REACTIONS (9)
  - Tachycardia [Unknown]
  - Anion gap increased [Unknown]
  - Dyspnoea [Unknown]
  - Kussmaul respiration [Unknown]
  - Hypotension [Unknown]
  - Confusional state [Unknown]
  - Lethargy [Unknown]
  - Pyroglutamate increased [Unknown]
  - Decreased appetite [Unknown]
